FAERS Safety Report 23607984 (Version 3)
Quarter: 2024Q4

REPORT INFORMATION
  Report Type: Report from Study
  Country: US (occurrence: US)
  Receive Date: 20240307
  Receipt Date: 20241206
  Transmission Date: 20250115
  Serious: No
  Sender: NOVARTIS
  Company Number: US-002147023-NVSC2024US047482

PATIENT
  Sex: Female
  Weight: 83.91 kg

DRUGS (3)
  1. COSENTYX [Suspect]
     Active Substance: SECUKINUMAB
     Indication: Psoriasis
     Dosage: 150 MG, QMO, INJECTION NOS
     Route: 065
     Dates: start: 202205
  2. COSENTYX [Suspect]
     Active Substance: SECUKINUMAB
     Dosage: 300 MG
     Route: 065
  3. COSENTYX [Suspect]
     Active Substance: SECUKINUMAB
     Dosage: 150MG PEN 1ML, QMO
     Route: 058
     Dates: start: 202206

REACTIONS (4)
  - Rash [Unknown]
  - Blister [Unknown]
  - Eczema [Unknown]
  - Product packaging issue [Unknown]
